FAERS Safety Report 9707207 (Version 1)
Quarter: 2013Q4

REPORT INFORMATION
  Report Type: Spontaneous
  Country: US (occurrence: US)
  Receive Date: 20131125
  Receipt Date: 20131125
  Transmission Date: 20140711
  Serious: Yes (Other)
  Sender: FDA-Public Use
  Company Number: US-JNJFOC-20131110700

PATIENT
  Sex: Male
  Weight: 139.26 kg

DRUGS (8)
  1. REMICADE [Suspect]
     Indication: RHEUMATOID ARTHRITIS
     Dosage: EVERY 6 OR 7 WEEKS
     Route: 042
     Dates: start: 2011
  2. METHOTREXATE [Concomitant]
     Indication: RHEUMATOID ARTHRITIS
     Dosage: 10 TABLETS/2.5MG/WEEKLY
     Route: 048
     Dates: start: 2005
  3. HYDROXYCHLOROQUINE [Concomitant]
     Indication: ARTHRITIS
     Route: 048
     Dates: start: 2008
  4. FOLIC ACID [Concomitant]
     Route: 048
     Dates: start: 2005
  5. VITAMIN D2 [Concomitant]
     Route: 065
     Dates: start: 2011
  6. CALCIUM [Concomitant]
     Route: 065
  7. VITAMIN C [Concomitant]
     Route: 065
  8. VITAMINE E [Concomitant]
     Route: 065

REACTIONS (2)
  - Osteoporosis [Not Recovered/Not Resolved]
  - Weight decreased [Not Recovered/Not Resolved]
